FAERS Safety Report 8277938-0 (Version None)
Quarter: 2012Q2

REPORT INFORMATION
  Report Type: 
  Country: None (occurrence: None)
  Receive Date: 20120412
  Receipt Date: 20120402
  Transmission Date: 20120825
  Serious: Yes (Life-Threatening, Hospitalization, Disabling)
  Sender: FDA-Public Use
  Company Number: US-BAYER-2012-032318

PATIENT
  Age: 24 Year
  Sex: Male

DRUGS (2)
  1. IBUPROFEN (ADVIL) [Suspect]
     Indication: PAIN
  2. ASPIRIN [Suspect]

REACTIONS (2)
  - GASTRECTOMY [None]
  - DRUG HYPERSENSITIVITY [None]
